FAERS Safety Report 5208531-1 (Version None)
Quarter: 2007Q1

REPORT INFORMATION
  Report Type: 
  Country: None (occurrence: None)
  Receive Date: 20070115
  Receipt Date: 20070108
  Transmission Date: 20070707
  Serious: Yes (Hospitalization)
  Sender: FDA-Public Use
  Company Number: US-BOEHRINGER INGELHEIM PHARMACEUTICALS, INC.-2006-BP-12939BP

PATIENT
  Age: 41 Year
  Sex: Female

DRUGS (9)
  1. MOBIC [Suspect]
     Indication: OSTEOARTHRITIS
     Route: 048
     Dates: start: 20060822, end: 20060919
  2. MOBIC [Suspect]
     Indication: ARTHRITIS
  3. LYRICA [Concomitant]
  4. ZOLOFT [Concomitant]
  5. AMBIEN CR [Concomitant]
  6. MEDROL PAK [Concomitant]
  7. DITROPAN [Concomitant]
  8. ALKA SELTZER [Concomitant]
  9. ASPERCREME [Concomitant]

REACTIONS (11)
  - BACK PAIN [None]
  - BLADDER DISORDER [None]
  - CHROMATURIA [None]
  - DELUSIONAL DISORDER, UNSPECIFIED TYPE [None]
  - GAIT DISTURBANCE [None]
  - HEADACHE [None]
  - HYPOAESTHESIA [None]
  - PALPITATIONS [None]
  - TONGUE COATED [None]
  - TONGUE DISORDER [None]
  - WEIGHT DECREASED [None]
